FAERS Safety Report 6091667-3 (Version None)
Quarter: 2009Q1

REPORT INFORMATION
  Report Type: 
  Country: None (occurrence: None)
  Receive Date: 20090225
  Receipt Date: 20080331
  Transmission Date: 20090719
  Serious: No
  Sender: FDA-Public Use
  Company Number: A0718350A

PATIENT
  Age: 59 Year
  Sex: Female

DRUGS (2)
  1. VALTREX [Suspect]
     Indication: IMMUNOSUPPRESSANT DRUG THERAPY
     Dosage: 500MG PER DAY
     Route: 048
     Dates: start: 20081101
  2. CONCURRENT MEDICATIONS [Concomitant]

REACTIONS (2)
  - DRUG INEFFECTIVE [None]
  - HERPES ZOSTER [None]
